FAERS Safety Report 16730290 (Version 3)
Quarter: 2019Q4

REPORT INFORMATION
  Report Type: Spontaneous
  Country: US (occurrence: US)
  Receive Date: 20190822
  Receipt Date: 20191024
  Transmission Date: 20200122
  Serious: Yes (Disabling)
  Sender: FDA-Public Use
  Company Number: US-AMGEN-USASP2019132579

PATIENT
  Age: 70 Year
  Sex: Male
  Weight: 104.31 kg

DRUGS (22)
  1. PROLIA [Suspect]
     Active Substance: DENOSUMAB
     Indication: HEPATIC CANCER
  2. NEXIUM I.V. [Concomitant]
     Active Substance: ESOMEPRAZOLE SODIUM
     Dosage: 40 MILLIGRAM, QD
     Route: 048
     Dates: start: 20180312
  3. AVODART [Concomitant]
     Active Substance: DUTASTERIDE
     Dosage: 0.5 MILLIGRAM, QD
     Route: 048
     Dates: start: 20180801
  4. ALDARA [Concomitant]
     Active Substance: IMIQUIMOD
     Dosage: 5 PERCENT CREAM, EXTERNAL DALLY FOR 6 DAYS WEEKLY
     Dates: start: 20160316
  5. PROLIA [Suspect]
     Active Substance: DENOSUMAB
     Indication: BONE LOSS
  6. KRISTALOSE [Concomitant]
     Active Substance: LACTULOSE
     Dosage: 20 GRAM, BID
     Route: 048
     Dates: start: 20180917
  7. LEVOTHYROXINE SODIUM. [Concomitant]
     Active Substance: LEVOTHYROXINE SODIUM
     Dosage: 50 MICROGRAM, QD
     Route: 048
     Dates: start: 20170323
  8. PROVENTIL HFA [SALBUTAMOL] [Concomitant]
     Dosage: 2 PUFFS INHALATION EVERY FOUR HOURS AS NEEDED
     Dates: start: 20170822
  9. ASPIRIN EC [Concomitant]
     Active Substance: ASPIRIN
     Dosage: 81 MILLIGRAM, QD
     Route: 048
     Dates: start: 20180717
  10. TYLENOL 8HR [Concomitant]
     Active Substance: ACETAMINOPHEN
     Dosage: 650 MILLIGRAM, Q8H
     Route: 048
     Dates: start: 20180717
  11. BETAMETHASONE VALERATE. [Concomitant]
     Active Substance: BETAMETHASONE VALERATE
     Indication: SKIN IRRITATION
     Dosage: (0.1 %), BID AS NECESSARY
     Dates: start: 20170822
  12. ECONAZOLE NITRATE. [Concomitant]
     Active Substance: ECONAZOLE NITRATE
     Dosage: 500 MILLIGRAM, BID AS NEEDED
     Dates: start: 20180717
  13. VITAMIN D3 [Concomitant]
     Active Substance: CHOLECALCIFEROL
     Indication: OSTEOPOROSIS
     Dosage: 5000 UNIT, QD
     Route: 048
     Dates: start: 20180824
  14. TURMERIC [CURCUMA LONGA] [Concomitant]
     Dosage: 500 MILLIGRAM, BID
     Route: 048
     Dates: start: 20180717
  15. CALCIUM [Concomitant]
     Active Substance: CALCIUM
     Indication: OSTEOPOROSIS
     Dosage: 1500 (600 CA), QD
     Route: 048
     Dates: start: 20181102
  16. VITAMIN B12 [Concomitant]
     Active Substance: CYANOCOBALAMIN
     Dosage: 1000 MICROGRAM, THREE TIMES A WEEK
     Dates: start: 20180307
  17. TAMSULOSIN HCL [Concomitant]
     Active Substance: TAMSULOSIN HYDROCHLORIDE
     Dosage: 0.4 MILLIGRAM, QHS
     Route: 048
     Dates: start: 20180917
  18. PROLIA [Suspect]
     Active Substance: DENOSUMAB
     Indication: OSTEOPOROSIS
     Dosage: 60 MILLIGRAM, Q6MO
     Route: 058
     Dates: start: 201810, end: 20181118
  19. OMEPRAZOLE. [Concomitant]
     Active Substance: OMEPRAZOLE
     Dosage: 40 MILLIGRAM, QD
     Route: 048
     Dates: start: 20180917
  20. TEMAZEPAM. [Concomitant]
     Active Substance: TEMAZEPAM
     Dosage: 15 MILLIGRAM AT BED TIME
     Route: 048
     Dates: start: 20180721
  21. LINZESS [Concomitant]
     Active Substance: LINACLOTIDE
     Dosage: 145 MICROGRAM, AS NECESSARY
     Route: 048
     Dates: start: 20140930
  22. PROGRAF [Concomitant]
     Active Substance: TACROLIMUS
     Dosage: 1 MILLIGRAM, BID
     Route: 048
     Dates: start: 20180509

REACTIONS (10)
  - Mouth ulceration [Recovering/Resolving]
  - Dyspepsia [Unknown]
  - Chills [Unknown]
  - Influenza like illness [Recovering/Resolving]
  - Fatigue [Unknown]
  - Injection site rash [Not Recovered/Not Resolved]
  - Bone pain [Recovered/Resolved]
  - Dysphagia [Unknown]
  - Arthralgia [Not Recovered/Not Resolved]
  - Myalgia [Recovering/Resolving]

NARRATIVE: CASE EVENT DATE: 2018
